FAERS Safety Report 17751878 (Version 1)
Quarter: 2020Q2

REPORT INFORMATION
  Report Type: Spontaneous
  Country: FR (occurrence: FR)
  Receive Date: 20200506
  Receipt Date: 20200506
  Transmission Date: 20200714
  Serious: Yes (Hospitalization)
  Sender: FDA-Public Use
  Company Number: FR-PFIZER INC-2020179976

PATIENT
  Age: 80 Year
  Sex: Male
  Weight: 80 kg

DRUGS (9)
  1. GENTAMICINE PANPHARMA [Suspect]
     Active Substance: GENTAMICIN
     Indication: STAPHYLOCOCCAL BACTERAEMIA
     Dosage: 320 MG, 1X/DAY
     Route: 042
     Dates: start: 20200226, end: 20200303
  2. ATORVASTATIN [Concomitant]
     Active Substance: ATORVASTATIN
     Indication: DYSLIPIDAEMIA
     Dosage: 20 MG, 1X/DAY
     Route: 048
  3. DALACINE [Suspect]
     Active Substance: CLINDAMYCIN
     Indication: INFECTION
     Dosage: 900 MG, 1X/DAY
     Route: 048
     Dates: start: 20200303, end: 20200308
  4. CEFTRIAXONE MYLAN [Suspect]
     Active Substance: CEFTRIAXONE
     Indication: STAPHYLOCOCCAL BACTERAEMIA
     Dosage: 1 G, 1X/DAY
     Route: 042
     Dates: start: 20200219, end: 20200225
  5. DUOPLAVIN [Concomitant]
     Active Substance: ASPIRIN\CLOPIDOGREL
     Indication: MYOCARDIAL ISCHAEMIA
     Dosage: 75 MG, 1X/DAY (1-0-0)
     Route: 048
  6. BISOPROLOL [Concomitant]
     Active Substance: BISOPROLOL
     Indication: MYOCARDIAL ISCHAEMIA
     Dosage: UNK
     Route: 048
  7. PANTOPRAZOLE [Concomitant]
     Active Substance: PANTOPRAZOLE
     Indication: GASTRIC ULCER
     Dosage: 40 MG, 1X/DAY (0-0-1)
     Route: 048
  8. ORBENINE [Suspect]
     Active Substance: CLOXACILLIN SODIUM
     Indication: STAPHYLOCOCCAL BACTERAEMIA
     Dosage: 8 G, 1X/DAY
     Route: 042
     Dates: start: 20200220, end: 20200303
  9. FOLIC ACID. [Concomitant]
     Active Substance: FOLIC ACID
     Indication: VITAMIN SUPPLEMENTATION
     Dosage: 5 MG, 1X/DAY
     Route: 048

REACTIONS (2)
  - Off label use [Unknown]
  - Vascular purpura [Not Recovered/Not Resolved]

NARRATIVE: CASE EVENT DATE: 20200306
